FAERS Safety Report 24131890 (Version 1)
Quarter: 2024Q3

REPORT INFORMATION
  Report Type: Spontaneous
  Country: US (occurrence: None)
  Receive Date: 20240724
  Receipt Date: 20240724
  Transmission Date: 20241017
  Serious: Yes (Other)
  Sender: Public
  Company Number: None

PATIENT
  Age: 70 Year
  Sex: Female

DRUGS (1)
  1. ENBREL [Suspect]
     Active Substance: BENZYL ALCOHOL\ETANERCEPT
     Indication: Rheumatoid arthritis
     Dosage: FREQUENCY : WEEKLY;?

REACTIONS (6)
  - Anaemia [None]
  - Small intestinal haemorrhage [None]
  - Accidental exposure to product [None]
  - Injection site reaction [None]
  - Musculoskeletal stiffness [None]
  - Drug ineffective [None]
